FAERS Safety Report 7208262-2 (Version None)
Quarter: 2010Q4

REPORT INFORMATION
  Report Type: 
  Country: None (occurrence: None)
  Receive Date: 20101230
  Receipt Date: 20101230
  Transmission Date: 20110411
  Serious: Yes (Life-Threatening, Hospitalization, Disabling)
  Sender: FDA-Public Use
  Company Number: None

PATIENT
  Age: 74 Year
  Sex: Male
  Weight: 55.5 kg

DRUGS (2)
  1. NJOY E-CIG [Suspect]
     Indication: SMOKING CESSATION THERAPY
     Dosage: NJOY E-CIG DAILY SMOKE/INHAL
     Route: 055
     Dates: start: 20101102, end: 20101106
  2. INVANZ [Concomitant]

REACTIONS (7)
  - APHASIA [None]
  - CONVULSION [None]
  - DYSPHAGIA [None]
  - ELECTROENCEPHALOGRAM ABNORMAL [None]
  - HYPOTENSION [None]
  - MEMORY IMPAIRMENT [None]
  - TREMOR [None]
